FAERS Safety Report 18642338 (Version 1)
Quarter: 2020Q4

REPORT INFORMATION
  Report Type: Spontaneous
  Country: JP (occurrence: JP)
  Receive Date: 20201221
  Receipt Date: 20201221
  Transmission Date: 20210114
  Serious: Yes (Hospitalization, Other)
  Sender: FDA-Public Use
  Company Number: JP-AMGEN-JPNSP2020205637

PATIENT
  Age: 67 Year
  Sex: Female

DRUGS (1)
  1. EVOLOCUMAB [Suspect]
     Active Substance: EVOLOCUMAB
     Indication: TYPE IIA HYPERLIPIDAEMIA
     Dosage: UNK
     Route: 065

REACTIONS (10)
  - Mitral valve incompetence [Recovered/Resolved]
  - Cardiac failure [Unknown]
  - Aortic valve incompetence [Recovered/Resolved]
  - Aortic valve stenosis [Recovered/Resolved]
  - Renal impairment [Recovered/Resolved]
  - Peripheral arterial occlusive disease [Unknown]
  - Angina pectoris [Unknown]
  - Pulmonary hypertension [Recovered/Resolved]
  - Sinus node dysfunction [Recovered/Resolved]
  - Coronary artery stenosis [Recovered/Resolved]
